FAERS Safety Report 11429149 (Version 2)
Quarter: 2015Q3

REPORT INFORMATION
  Report Type: Spontaneous
  Country: US (occurrence: US)
  Receive Date: 20150828
  Receipt Date: 20150902
  Transmission Date: 20151125
  Serious: Yes (Hospitalization)
  Sender: FDA-Public Use
  Company Number: US-ROCHE-1626780

PATIENT
  Age: 72 Year
  Sex: Female

DRUGS (16)
  1. FOSAMAX [Concomitant]
     Active Substance: ALENDRONATE SODIUM
     Indication: POLYMYOSITIS
     Dosage: ONCE A WEEK
     Route: 065
  2. FISH OIL [Concomitant]
     Active Substance: FISH OIL
     Dosage: 2.8G TOTAL
     Route: 065
  3. LEVOTHYROXINE. [Concomitant]
     Active Substance: LEVOTHYROXINE
     Route: 065
  4. LANTUS [Concomitant]
     Active Substance: INSULIN GLARGINE
     Indication: DIABETES MELLITUS
     Dosage: 26 UNITS
     Route: 065
  5. OMEPRAZOLE. [Concomitant]
     Active Substance: OMEPRAZOLE
     Dosage: OVER 4 YEARS
     Route: 065
  6. METFORMIN [Concomitant]
     Active Substance: METFORMIN HYDROCHLORIDE
     Indication: TYPE 2 DIABETES MELLITUS
     Route: 065
  7. PREDNISONE. [Concomitant]
     Active Substance: PREDNISONE
     Indication: POLYMYOSITIS
     Route: 065
  8. APIDRA [Concomitant]
     Active Substance: INSULIN GLULISINE
     Indication: DIABETES MELLITUS
     Dosage: 3 TO 4 TIMES DAILY;SLIDING SCALE AS NEEDED
     Route: 065
  9. OXYGEN CONCENTRATOR [Concomitant]
     Dosage: 2.5L/MIN FOR 24 HOURS;OVER 4 YEARS
     Route: 065
  10. SPIRIVA [Concomitant]
     Active Substance: TIOTROPIUM BROMIDE MONOHYDRATE
     Dosage: 2 PUFFS
     Route: 065
  11. AZATHIOPRINE. [Concomitant]
     Active Substance: AZATHIOPRINE
     Indication: MYOSITIS
     Dosage: FOR OVE 4 YEARS
     Route: 065
  12. ESBRIET [Suspect]
     Active Substance: PIRFENIDONE
     Indication: PULMONARY FIBROSIS
     Dosage: 6 PILLS PER DAY, 267 MG
     Route: 065
     Dates: start: 20150820
  13. LASIX [Concomitant]
     Active Substance: FUROSEMIDE
     Dosage: EVERY OTHER DAY
     Route: 065
     Dates: start: 20150827
  14. BABY ASPIRIN [Concomitant]
     Active Substance: ASPIRIN
     Route: 065
  15. VITAMIN B6 [Concomitant]
     Active Substance: PYRIDOXINE HYDROCHLORIDE
     Route: 065
  16. ATORVASTATIN [Concomitant]
     Active Substance: ATORVASTATIN
     Indication: BLOOD CHOLESTEROL INCREASED
     Dosage: AT BEDTIME
     Route: 065

REACTIONS (12)
  - Headache [Recovering/Resolving]
  - Decreased appetite [Unknown]
  - Joint swelling [Unknown]
  - Confusional state [Recovering/Resolving]
  - Vomiting [Recovering/Resolving]
  - Hyponatraemia [Unknown]
  - Nausea [Unknown]
  - Hypertension [Unknown]
  - Abdominal discomfort [Unknown]
  - Blood sodium decreased [Recovering/Resolving]
  - Drug dose omission [Unknown]
  - Fatigue [Recovering/Resolving]

NARRATIVE: CASE EVENT DATE: 20150821
